FAERS Safety Report 9858396 (Version 1)
Quarter: 2014Q1

REPORT INFORMATION
  Report Type: Spontaneous
  Country: FR (occurrence: FR)
  Receive Date: 20140131
  Receipt Date: 20140131
  Transmission Date: 20141002
  Serious: Yes (Other)
  Sender: FDA-Public Use
  Company Number: FR-TEVA-457380ISR

PATIENT
  Age: 19 Year
  Sex: Female

DRUGS (4)
  1. VINCRISTINE [Suspect]
     Indication: NON-HODGKIN^S LYMPHOMA
     Dosage: 2 MILLIGRAM DAILY;
     Route: 042
     Dates: start: 20130319, end: 20130319
  2. PURINETHOL [Suspect]
     Indication: NON-HODGKIN^S LYMPHOMA
     Dosage: 75 MILLIGRAM DAILY;
     Route: 048
     Dates: start: 20130319, end: 20130423
  3. METHOTREXATE [Suspect]
     Indication: NON-HODGKIN^S LYMPHOMA
     Dosage: 5 MILLIGRAM DAILY;
     Route: 048
     Dates: start: 20130319, end: 20130423
  4. PREDNISONE [Suspect]
     Dosage: 60 MILLIGRAM DAILY;
     Route: 048
     Dates: start: 20130319, end: 20130325

REACTIONS (2)
  - Febrile bone marrow aplasia [Recovered/Resolved]
  - Upper respiratory tract inflammation [Recovered/Resolved]
